FAERS Safety Report 17592683 (Version 1)
Quarter: 2020Q1

REPORT INFORMATION
  Report Type: Spontaneous
  Country: FR (occurrence: FR)
  Receive Date: 20200327
  Receipt Date: 20200327
  Transmission Date: 20200409
  Serious: Yes (Hospitalization)
  Sender: FDA-Public Use
  Company Number: FR-MYLANLABS-2020M1032853

PATIENT
  Age: 38 Year
  Sex: Male

DRUGS (2)
  1. TRAMADOL. [Suspect]
     Active Substance: TRAMADOL
     Indication: PROCEDURAL PAIN
     Dosage: UNK
     Route: 048
     Dates: start: 20191220, end: 20191229
  2. CORTANCYL [Suspect]
     Active Substance: PREDNISONE
     Indication: ANTIINFLAMMATORY THERAPY
     Dosage: UNK
     Dates: start: 20191220

REACTIONS (1)
  - Behaviour disorder [Recovering/Resolving]

NARRATIVE: CASE EVENT DATE: 20191220
